FAERS Safety Report 8607356-4 (Version None)
Quarter: 2012Q3

REPORT INFORMATION
  Report Type: 
  Country: None (occurrence: None)
  Receive Date: 20120803
  Receipt Date: 20120724
  Transmission Date: 20120928
  Serious: Yes (Hospitalization)
  Sender: FDA-Public Use
  Company Number: B0818935A

PATIENT
  Age: 35 Year
  Sex: Male

DRUGS (5)
  1. LAMIVUDINE [Suspect]
     Indication: PRODUCT USED FOR UNKNOWN INDICATION
  2. RETROVIR [Suspect]
     Indication: PRODUCT USED FOR UNKNOWN INDICATION
  3. ITRACONAZOLE [Concomitant]
  4. EFAVIRENZ [Suspect]
  5. AMPHOTERICIN B [Concomitant]

REACTIONS (13)
  - PSYCHOMOTOR HYPERACTIVITY [None]
  - AGITATION [None]
  - SYNCOPE [None]
  - HYPERREFLEXIA [None]
  - IMMUNE RECONSTITUTION SYNDROME [None]
  - AGGRESSION [None]
  - PHONOPHOBIA [None]
  - CONFUSIONAL STATE [None]
  - DYSARTHRIA [None]
  - PARACOCCIDIOIDES INFECTION [None]
  - IRRITABILITY [None]
  - COORDINATION ABNORMAL [None]
  - BRAIN OEDEMA [None]
